FAERS Safety Report 17452733 (Version 2)
Quarter: 2020Q3

REPORT INFORMATION
  Report Type: Spontaneous
  Country: US (occurrence: US)
  Receive Date: 20200224
  Receipt Date: 20200413
  Transmission Date: 20201105
  Serious: Yes (Hospitalization)
  Sender: FDA-Public Use
  Company Number: US-CELGENEUS-USA-20200207867

PATIENT
  Sex: Male
  Weight: 85.7 kg

DRUGS (38)
  1. ABRAXANE [Suspect]
     Active Substance: PACLITAXEL
     Dosage: 100 MG/M2
     Route: 065
     Dates: start: 20191024, end: 20191024
  2. OLECLUMAB. [Suspect]
     Active Substance: OLECLUMAB
     Indication: ADENOCARCINOMA PANCREAS
     Dosage: 3000 MILLIGRAM
     Route: 042
     Dates: start: 20191016, end: 20191016
  3. GEMCITABINE. [Suspect]
     Active Substance: GEMCITABINE
     Indication: ADENOCARCINOMA PANCREAS
     Dosage: 800 MG/M2
     Route: 065
     Dates: start: 20191226, end: 20191226
  4. DOCUSATE SODIUM. [Concomitant]
     Active Substance: DOCUSATE SODIUM
     Indication: CONSTIPATION
     Dosage: 100 MILLIGRAM
     Route: 048
     Dates: start: 20191024
  5. ABRAXANE [Suspect]
     Active Substance: PACLITAXEL
     Indication: ADENOCARCINOMA PANCREAS
     Dosage: 125 MG/M2
     Route: 065
     Dates: start: 20190819, end: 20190819
  6. ABRAXANE [Suspect]
     Active Substance: PACLITAXEL
     Dosage: 125 MG/M2
     Route: 065
     Dates: start: 20190918, end: 20190918
  7. OLECLUMAB. [Suspect]
     Active Substance: OLECLUMAB
     Indication: ADENOCARCINOMA PANCREAS
     Dosage: 3000 MILLIGRAM
     Route: 042
     Dates: start: 20191212, end: 20191212
  8. GEMCITABINE. [Suspect]
     Active Substance: GEMCITABINE
     Indication: ADENOCARCINOMA PANCREAS
     Dosage: 1000 MG/M2
     Route: 065
     Dates: start: 20190918, end: 20190918
  9. AMLODIPINE [Concomitant]
     Active Substance: AMLODIPINE BESYLATE
     Indication: HYPERTENSION
     Dosage: 10 MILLIGRAM
     Route: 048
     Dates: start: 2008
  10. ABRAXANE [Suspect]
     Active Substance: PACLITAXEL
     Dosage: 125 MG/M2
     Route: 065
     Dates: start: 20190826, end: 20190826
  11. OLECLUMAB. [Suspect]
     Active Substance: OLECLUMAB
     Indication: ADENOCARCINOMA PANCREAS
     Dosage: 3000 MILLIGRAM
     Route: 042
     Dates: start: 20190819, end: 20190819
  12. OLECLUMAB. [Suspect]
     Active Substance: OLECLUMAB
     Indication: ADENOCARCINOMA PANCREAS
     Dosage: 3000 MILLIGRAM
     Route: 042
     Dates: start: 20190918, end: 20190918
  13. GEMCITABINE. [Suspect]
     Active Substance: GEMCITABINE
     Indication: ADENOCARCINOMA PANCREAS
     Dosage: 800 MG/M2
     Route: 065
     Dates: start: 20190819, end: 20190819
  14. GEMCITABINE. [Suspect]
     Active Substance: GEMCITABINE
     Indication: ADENOCARCINOMA PANCREAS
     Dosage: 800 MG/M2
     Route: 065
     Dates: start: 20191016, end: 20191016
  15. GEMCITABINE. [Suspect]
     Active Substance: GEMCITABINE
     Indication: ADENOCARCINOMA PANCREAS
     Dosage: 800 MG/M2
     Route: 065
     Dates: start: 20191127, end: 20191127
  16. METOPROLOL SUCCINATE. [Concomitant]
     Active Substance: METOPROLOL SUCCINATE
     Indication: HYPERTENSION
     Dosage: 50 MILLIGRAM
     Route: 048
     Dates: start: 201902
  17. PROCHLORPERAZINE EDISYLATE. [Concomitant]
     Active Substance: PROCHLORPERAZINE EDISYLATE
     Indication: NAUSEA
     Dosage: 10 MILLIGRAM
     Route: 048
     Dates: start: 20190819
  18. ONDANSETRON [Concomitant]
     Active Substance: ONDANSETRON
     Indication: PROPHYLAXIS
     Dosage: 8 MILLIGRAM
     Route: 042
     Dates: start: 20190819
  19. OLECLUMAB. [Suspect]
     Active Substance: OLECLUMAB
     Indication: ADENOCARCINOMA PANCREAS
     Dosage: 3000 MILLIGRAM
     Route: 042
     Dates: start: 20191114, end: 20191114
  20. PARACETAMOL [Concomitant]
     Active Substance: ACETAMINOPHEN
     Indication: OSTEOARTHRITIS
     Dosage: 500 MILLIGRAM
     Route: 048
     Dates: start: 1999
  21. PANCRELIPASE. [Concomitant]
     Active Substance: PANCRELIPASE
     Indication: PANCREATIC FAILURE
     Route: 048
     Dates: start: 20190819
  22. CALCIUM CARBONATE. [Concomitant]
     Active Substance: CALCIUM CARBONATE
     Indication: GASTROOESOPHAGEAL REFLUX DISEASE
     Dosage: 500 MILLIGRAM
     Route: 048
     Dates: start: 20200104
  23. ABRAXANE [Suspect]
     Active Substance: PACLITAXEL
     Dosage: 100 MG/M2
     Route: 065
     Dates: start: 20191226, end: 20191226
  24. ABRAXANE [Suspect]
     Active Substance: PACLITAXEL
     Dosage: 100 MG/M2
     Route: 065
     Dates: start: 20200123, end: 20200123
  25. OLECLUMAB. [Suspect]
     Active Substance: OLECLUMAB
     Indication: ADENOCARCINOMA PANCREAS
     Dosage: 3000 MILLIGRAM
     Route: 042
     Dates: start: 20200109, end: 20200109
  26. GEMCITABINE. [Suspect]
     Active Substance: GEMCITABINE
     Indication: ADENOCARCINOMA PANCREAS
     Dosage: 800 MG/M2
     Route: 065
     Dates: start: 20191024, end: 20191024
  27. GEMCITABINE. [Suspect]
     Active Substance: GEMCITABINE
     Indication: ADENOCARCINOMA PANCREAS
     Dosage: 800 MG/M2
     Route: 065
     Dates: start: 20191212, end: 20191212
  28. ABRAXANE [Suspect]
     Active Substance: PACLITAXEL
     Dosage: 125 MG/M2
     Route: 065
     Dates: start: 20190925, end: 20190925
  29. ABRAXANE [Suspect]
     Active Substance: PACLITAXEL
     Dosage: 100 MG/M2
     Route: 065
     Dates: start: 20191127, end: 20191127
  30. GEMCITABINE. [Suspect]
     Active Substance: GEMCITABINE
     Indication: ADENOCARCINOMA PANCREAS
     Dosage: 1000 MG/M2
     Route: 065
     Dates: start: 20190826, end: 20190826
  31. GEMCITABINE. [Suspect]
     Active Substance: GEMCITABINE
     Indication: ADENOCARCINOMA PANCREAS
     Dosage: 800 MG/M2
     Route: 065
     Dates: start: 20200123, end: 20200123
  32. ROSUVASTATIN CALCIUM. [Concomitant]
     Active Substance: ROSUVASTATIN CALCIUM
     Indication: HYPERLIPIDAEMIA
     Dosage: 20 MILLIGRAM
     Route: 048
     Dates: start: 201902
  33. ASPIRIN. [Concomitant]
     Active Substance: ASPIRIN
     Indication: PROPHYLAXIS
     Dosage: 81 MILLIGRAM
     Route: 048
     Dates: start: 2008
  34. FAMOTIDINE. [Concomitant]
     Active Substance: FAMOTIDINE
     Indication: GASTROOESOPHAGEAL REFLUX DISEASE
     Dosage: 20 MILLIGRAM
     Route: 048
     Dates: start: 20200123
  35. ABRAXANE [Suspect]
     Active Substance: PACLITAXEL
     Dosage: 100 MG/M2
     Route: 065
     Dates: start: 20191016, end: 20191016
  36. ABRAXANE [Suspect]
     Active Substance: PACLITAXEL
     Dosage: 100 MG/M2
     Route: 065
     Dates: start: 20191212, end: 20191212
  37. GEMCITABINE. [Suspect]
     Active Substance: GEMCITABINE
     Indication: ADENOCARCINOMA PANCREAS
     Dosage: 1000 MG/M2
     Route: 065
     Dates: start: 20190925, end: 20190925
  38. LISINOPRIL. [Concomitant]
     Active Substance: LISINOPRIL
     Indication: HYPERLIPIDAEMIA
     Dosage: 40 MILLIGRAM
     Route: 048
     Dates: start: 201902

REACTIONS (1)
  - Obstruction gastric [Recovered/Resolved]

NARRATIVE: CASE EVENT DATE: 20200211
